FAERS Safety Report 8513680-6 (Version None)
Quarter: 2012Q3

REPORT INFORMATION
  Report Type: 
  Country: None (occurrence: None)
  Receive Date: 20120717
  Receipt Date: 20120706
  Transmission Date: 20120928
  Serious: Yes (Other)
  Sender: FDA-Public Use
  Company Number: GB-ACCORD-014068

PATIENT
  Age: 80 Year
  Sex: Female

DRUGS (7)
  1. SIMVASTATIN [Suspect]
     Dosage: UNK
  2. CLOPIDOGREL [Concomitant]
     Dosage: UNK
  3. LISINOPRIL [Concomitant]
     Dosage: 20 MG, UNK AQUEOUS NASAL SPRAY.
     Route: 045
  4. FYBOGEL [Concomitant]
     Dosage: UNK
  5. LANSOPRAZOLE [Concomitant]
     Dosage: UNK
  6. METFORMIN HYDROCHLORIDE [Concomitant]
     Dosage: UNK
  7. JANUVIA [Concomitant]
     Dosage: UNK

REACTIONS (2)
  - ABASIA [None]
  - PAIN IN EXTREMITY [None]
